FAERS Safety Report 18131356 (Version 1)
Quarter: 2020Q3

REPORT INFORMATION
  Report Type: Report from Study
  Country: CR (occurrence: CR)
  Receive Date: 20200810
  Receipt Date: 20200810
  Transmission Date: 20201103
  Serious: Yes (Life-Threatening)
  Sender: FDA-Public Use
  Company Number: NVSC2020CR221059

PATIENT
  Age: 71 Year
  Sex: Female

DRUGS (4)
  1. IRBESARTAN. [Suspect]
     Active Substance: IRBESARTAN
     Indication: PRODUCT USED FOR UNKNOWN INDICATION
     Dosage: 1 DF, QD (AT 8 AM)
     Route: 065
  2. AMLODIPINE [Concomitant]
     Active Substance: AMLODIPINE BESYLATE
     Indication: PRODUCT USED FOR UNKNOWN INDICATION
     Dosage: 2 DF, QD
     Route: 065
  3. LOVASTATIN. [Concomitant]
     Active Substance: LOVASTATIN
     Indication: PRODUCT USED FOR UNKNOWN INDICATION
     Dosage: 1 DF, BID
     Route: 065
  4. ATENOLOL. [Concomitant]
     Active Substance: ATENOLOL
     Indication: PRODUCT USED FOR UNKNOWN INDICATION
     Dosage: 1 DF, QD
     Route: 065

REACTIONS (1)
  - Hypertensive crisis [Unknown]
